FAERS Safety Report 13458378 (Version 1)
Quarter: 2017Q2

REPORT INFORMATION
  Report Type: Report from Study
  Country: LB (occurrence: LB)
  Receive Date: 20170419
  Receipt Date: 20170419
  Transmission Date: 20170830
  Serious: Yes (Death)
  Sender: FDA-Public Use
  Company Number: US-ASTRAZENECA-2017SE40181

PATIENT
  Age: 203 Day
  Sex: Male

DRUGS (3)
  1. SYNAGIS [Suspect]
     Active Substance: PALIVIZUMAB
     Indication: CARDIOMYOPATHY
     Route: 030
     Dates: start: 20170209, end: 20170209
  2. SYNAGIS [Suspect]
     Active Substance: PALIVIZUMAB
     Indication: CARDIOMYOPATHY
     Route: 030
     Dates: start: 20161109, end: 20161109
  3. SYNAGIS [Suspect]
     Active Substance: PALIVIZUMAB
     Indication: CARDIOMYOPATHY
     Route: 030
     Dates: start: 20170109, end: 20170109

REACTIONS (2)
  - Death [Fatal]
  - Cyanosis [Fatal]

NARRATIVE: CASE EVENT DATE: 20170317
